FAERS Safety Report 6954646-7 (Version None)
Quarter: 2010Q3

REPORT INFORMATION
  Report Type: 
  Country: None (occurrence: None)
  Receive Date: 20100829
  Receipt Date: 20100722
  Transmission Date: 20110219
  Serious: No
  Sender: FDA-Public Use
  Company Number: US-ABBOTT-10P-163-0659539-00

PATIENT
  Sex: Female
  Weight: 67.646 kg

DRUGS (4)
  1. NIASPAN [Suspect]
     Indication: BLOOD CHOLESTEROL INCREASED
     Route: 048
     Dates: start: 20100210
  2. NIASPAN [Suspect]
     Route: 048
     Dates: start: 20100301, end: 20100414
  3. NIASPAN [Suspect]
     Route: 048
     Dates: start: 20100415
  4. METROGEL [Concomitant]
     Indication: PRODUCT USED FOR UNKNOWN INDICATION

REACTIONS (4)
  - DRY SKIN [None]
  - PAIN [None]
  - PAIN IN EXTREMITY [None]
  - RASH MACULAR [None]
